FAERS Safety Report 4366830-X (Version None)
Quarter: 2004Q2

REPORT INFORMATION
  Report Type: 
  Country: None (occurrence: None)
  Receive Date: 20040528
  Receipt Date: 20030502
  Transmission Date: 20050107
  Serious: No
  Sender: FDA-Public Use
  Company Number: US-GLAXOSMITHKLINE-A0407079A

PATIENT
  Age: 79 Year
  Sex: Male

DRUGS (4)
  1. BACTROBAN [Suspect]
     Indication: SKIN ULCER
     Route: 061
     Dates: start: 20030401
  2. PAXIL [Concomitant]
  3. LIPITOR [Concomitant]
  4. LOPID [Concomitant]

REACTIONS (1)
  - DRUG INEFFECTIVE [None]
